FAERS Safety Report 13909572 (Version 3)
Quarter: 2018Q3

REPORT INFORMATION
  Report Type: Spontaneous
  Country: US (occurrence: US)
  Receive Date: 20170828
  Receipt Date: 20180823
  Transmission Date: 20181010
  Serious: No
  Sender: FDA-Public Use
  Company Number: US-PFIZER INC-2017365614

PATIENT
  Age: 63 Year
  Sex: Female

DRUGS (1)
  1. GENOTROPIN [Suspect]
     Active Substance: SOMATROPIN
     Indication: ADDISON^S DISEASE
     Dosage: 0.1 MG, DAILY

REACTIONS (7)
  - Product use in unapproved indication [Unknown]
  - Wrong technique in device usage process [Unknown]
  - Asthenia [Unknown]
  - Drug dose omission [Unknown]
  - Fatigue [Unknown]
  - Poor quality device used [Unknown]
  - Device issue [Unknown]
